FAERS Safety Report 19021910 (Version 5)
Quarter: 2021Q3

REPORT INFORMATION
  Report Type: Other
  Country: US (occurrence: US)
  Receive Date: 20210317
  Receipt Date: 20210827
  Transmission Date: 20211014
  Serious: Yes (Disabling, Other)
  Sender: FDA-Public Use
  Company Number: US-ROCHE-2785362

PATIENT
  Age: 25 Year
  Sex: Male

DRUGS (2)
  1. EVRYSDI [Suspect]
     Active Substance: RISDIPLAM
     Indication: SPINAL MUSCULAR ATROPHY
     Route: 048
     Dates: start: 20200917
  2. EVRYSDI [Suspect]
     Active Substance: RISDIPLAM
     Indication: SPINAL MUSCULAR ATROPHY

REACTIONS (6)
  - Musculoskeletal disorder [Unknown]
  - Mental disorder [Recovered/Resolved]
  - Anxiety [Unknown]
  - Dyspnoea [Unknown]
  - Dysphagia [Not Recovered/Not Resolved]
  - Muscular weakness [Not Recovered/Not Resolved]

NARRATIVE: CASE EVENT DATE: 20210807
